FAERS Safety Report 8360039-0 (Version None)
Quarter: 2012Q1

REPORT INFORMATION
  Report Type: 
  Country: None (occurrence: None)
  Receive Date: 20120323
  Receipt Date: 20111013
  Transmission Date: 20120608
  Serious: Yes (Other)
  Sender: FDA-Public Use
  Company Number: 163-21880-11101831

PATIENT
  Age: 55 Year
  Sex: Male

DRUGS (1)
  1. REVLIMID [Suspect]
     Indication: MULTIPLE MYELOMA
     Dosage: 15 MG, DAILY FOR 14 DAYS, PO
     Route: 048
     Dates: start: 20110801

REACTIONS (7)
  - FEELING OF BODY TEMPERATURE CHANGE [None]
  - FLATULENCE [None]
  - CHEST PAIN [None]
  - VOMITING [None]
  - VIRAL INFECTION [None]
  - NAUSEA [None]
  - DYSPNOEA [None]
